FAERS Safety Report 4337750-1 (Version None)
Quarter: 2004Q2

REPORT INFORMATION
  Report Type: 
  Country: None (occurrence: None)
  Receive Date: 20040407
  Receipt Date: 20040324
  Transmission Date: 20050107
  Serious: Yes (Other)
  Sender: FDA-Public Use
  Company Number: NSADSS2002005899

PATIENT
  Age: 52 Year
  Sex: Female

DRUGS (7)
  1. REMICADE [Suspect]
     Indication: RHEUMATOID ARTHRITIS
     Dosage: INTRAVENOUS DRIP
     Route: 041
     Dates: start: 20000825, end: 20000825
  2. REMICADE [Suspect]
     Indication: RHEUMATOID ARTHRITIS
     Dosage: INTRAVENOUS DRIP
     Route: 041
     Dates: start: 20010215, end: 20010215
  3. CORTICOSTEROID NOS (CORTICOSTEROID NOS) [Suspect]
  4. CALCIUM/VITAMIN D (CALCIUM WITH VITAMIN D) [Concomitant]
  5. AMITRIPTYLINE HCL [Concomitant]
  6. NONSTEROIDAL ANTIFLAMMATORY (NSAID'S) [Concomitant]
  7. AZATHIOPRINE [Concomitant]

REACTIONS (1)
  - PULMONARY TUBERCULOSIS [None]
